FAERS Safety Report 6195298-6 (Version None)
Quarter: 2009Q2

REPORT INFORMATION
  Report Type: 
  Country: None (occurrence: None)
  Receive Date: 20090519
  Receipt Date: 20090512
  Transmission Date: 20091009
  Serious: Yes (Hospitalization)
  Sender: FDA-Public Use
  Company Number: US-ELI_LILLY_AND_COMPANY-US200905002408

PATIENT
  Sex: Female

DRUGS (3)
  1. HUMALOG [Suspect]
     Dosage: 12 U, EACH EVENING
     Dates: end: 20090501
  2. HUMULIN N [Suspect]
     Indication: TYPE 1 DIABETES MELLITUS
     Dosage: 20 U, EACH MORNING
     Dates: end: 20090501
  3. HUMULIN N [Suspect]
     Dosage: 6 U, EACH EVENING

REACTIONS (1)
  - BLOOD GLUCOSE INCREASED [None]
